FAERS Safety Report 6088430-6 (Version None)
Quarter: 2009Q1

REPORT INFORMATION
  Report Type: 
  Country: None (occurrence: None)
  Receive Date: 20090224
  Receipt Date: 20090213
  Transmission Date: 20090719
  Serious: Yes (Other)
  Sender: FDA-Public Use
  Company Number: CA-PFIZER INC-2009170712

PATIENT

DRUGS (1)
  1. CELEBREX [Suspect]
     Indication: LIMB OPERATION
     Route: 048
     Dates: start: 20090209, end: 20090212

REACTIONS (10)
  - AMNESIA [None]
  - CONSTIPATION [None]
  - CONVULSION [None]
  - GASTROINTESTINAL ULCER [None]
  - HALLUCINATION [None]
  - HYPOAESTHESIA [None]
  - MUSCLE SPASMS [None]
  - SWELLING [None]
  - THROMBOSIS [None]
  - VISION BLURRED [None]
